FAERS Safety Report 4608787-X (Version None)
Quarter: 2005Q1

REPORT INFORMATION
  Report Type: 
  Country: None (occurrence: None)
  Receive Date: 20050309
  Receipt Date: 20050224
  Transmission Date: 20050727
  Serious: Yes (Death, Life-Threatening, Hospitalization)
  Sender: FDA-Public Use
  Company Number: WAES 0408USA01459

PATIENT
  Age: 67 Year
  Sex: Male

DRUGS (7)
  1. COZAAR [Suspect]
     Indication: HYPERTENSION
     Dosage: 50 + 100 MG/DAILY PO
     Route: 048
     Dates: start: 20010523, end: 20020926
  2. COZAAR [Suspect]
     Indication: HYPERTENSION
     Dosage: 50 + 100 MG/DAILY PO
     Route: 048
     Dates: start: 20020927, end: 20021105
  3. COZAAR [Suspect]
     Indication: HYPERTENSION
     Dosage: 50 + 100 MG/DAILY PO
     Route: 048
     Dates: start: 20021106, end: 20030613
  4. COZAAR [Suspect]
     Indication: HYPERTENSION
     Dosage: 50 + 100 MG/DAILY PO
     Route: 048
     Dates: start: 20030614, end: 20040204
  5. CONIEL [Concomitant]
  6. MERISLON [Concomitant]
  7. MUCOSOLVAN-L [Concomitant]

REACTIONS (3)
  - ACUTE ABDOMEN [None]
  - MALIGNANT OMENTUM NEOPLASM [None]
  - POLYMYALGIA RHEUMATICA [None]
